FAERS Safety Report 24771762 (Version 2)
Quarter: 2024Q4

REPORT INFORMATION
  Report Type: Report from Study
  Country: CH (occurrence: CH)
  Receive Date: 20241224
  Receipt Date: 20241227
  Transmission Date: 20250115
  Serious: Yes (Hospitalization)
  Sender: ABBVIE
  Company Number: CH-ABBVIE-6051366

PATIENT
  Age: 61 Year
  Sex: Male

DRUGS (4)
  1. CARBIDOPA\LEVODOPA [Suspect]
     Active Substance: CARBIDOPA\LEVODOPA
     Indication: Parkinson^s disease
     Dosage: MD: 3.4 ML, CRD: 0.9 ML/H, ED: 0.5 ML?16H THERAPY
     Route: 050
     Dates: start: 20241216, end: 20241218
  2. CARBIDOPA\LEVODOPA [Suspect]
     Active Substance: CARBIDOPA\LEVODOPA
     Dosage: MD: 3.4 ML, CRD: 0.9 ML/H, ED: 0.5 ML/16H THERAPY
     Route: 050
     Dates: start: 20241211, end: 20241216
  3. CARBIDOPA\LEVODOPA [Suspect]
     Active Substance: CARBIDOPA\LEVODOPA
     Dosage: MD: 3.4 ML, CRD: 0.9 ML/H, ED: 0.5 ML, FREQUENCY TEXT: 16H THERAPY
     Route: 050
     Dates: start: 20241218
  4. CARBIDOPA\LEVODOPA [Suspect]
     Active Substance: CARBIDOPA\LEVODOPA
     Route: 050

REACTIONS (4)
  - Device issue [Recovered/Resolved]
  - Confusional state [Unknown]
  - Off label use [Recovered/Resolved]
  - Intentional device misuse [Unknown]

NARRATIVE: CASE EVENT DATE: 20241201
